FAERS Safety Report 12583589 (Version 1)
Quarter: 2016Q3

REPORT INFORMATION
  Report Type: Spontaneous
  Country: US (occurrence: US)
  Receive Date: 20160722
  Receipt Date: 20160722
  Transmission Date: 20161109
  Serious: No
  Sender: FDA-Public Use
  Company Number: US-GALDERMA-US16001755

PATIENT
  Age: 14 Year
  Sex: Female
  Weight: 59 kg

DRUGS (3)
  1. ADAPALENE (ADAPALENE) [Suspect]
     Active Substance: ADAPALENE
     Indication: ACNE
     Route: 061
     Dates: start: 201510
  2. CETAPHIL [Concomitant]
     Active Substance: AVOBENZONE\OCTOCRYLENE\TRICLOSAN
     Indication: THERAPEUTIC SKIN CARE TOPICAL
     Route: 061
     Dates: start: 201510
  3. ACTICLATE (DOXYCYCLINE HYCLATE) TABLET, 150MG [Concomitant]
     Indication: ACNE
     Route: 048

REACTIONS (2)
  - Headache [Recovered/Resolved]
  - Chest pain [Recovered/Resolved]
